FAERS Safety Report 7639059-7 (Version None)
Quarter: 2011Q3

REPORT INFORMATION
  Report Type: 
  Country: None (occurrence: None)
  Receive Date: 20110726
  Receipt Date: 20110726
  Transmission Date: 20111222
  Serious: Yes (Disabling)
  Sender: FDA-Public Use
  Company Number: None

PATIENT
  Sex: Female
  Weight: 83.7 kg

DRUGS (11)
  1. ALBUTEROL SULFATE AUTOHALER [Concomitant]
  2. ACTOS [Concomitant]
  3. BACLOFEN [Concomitant]
  4. ACID RELIEF [Concomitant]
  5. IBUPROFEN [Concomitant]
  6. SINGULAIR [Concomitant]
  7. FUROSEMIDE [Concomitant]
  8. RAMIPRIL [Concomitant]
  9. POTASSIUM CHLORIDE [Concomitant]
  10. RECLAST [Suspect]
     Indication: OSTEOPOROSIS
     Dosage: 5MG YEARLY INTRAVENOUSLY @2.5ML PER MIN.
     Route: 042
     Dates: start: 20110615
  11. AVONEX [Concomitant]

REACTIONS (6)
  - LOBAR PNEUMONIA [None]
  - ARTHRALGIA [None]
  - COUGH [None]
  - MYALGIA [None]
  - GAIT DISTURBANCE [None]
  - RELAPSING-REMITTING MULTIPLE SCLEROSIS [None]
